FAERS Safety Report 11103687 (Version 1)
Quarter: 2015Q2

REPORT INFORMATION
  Report Type: Spontaneous
  Country: US (occurrence: US)
  Receive Date: 20150511
  Receipt Date: 20150511
  Transmission Date: 20150821
  Serious: Yes (Other)
  Sender: FDA-Public Use
  Company Number: US-PFIZER INC-2015154449

PATIENT
  Age: 93 Year
  Sex: Male

DRUGS (15)
  1. MEDROL [Suspect]
     Active Substance: METHYLPREDNISOLONE
     Indication: GOUT
     Dosage: UNK
  2. COLACE [Concomitant]
     Active Substance: DOCUSATE SODIUM
     Dosage: UNK
  3. XTANDI [Suspect]
     Active Substance: ENZALUTAMIDE
     Indication: PROSTATE CANCER
     Dosage: 160 MG, 1X/DAY
     Dates: start: 20141126
  4. XTANDI [Suspect]
     Active Substance: ENZALUTAMIDE
     Dosage: 80 MG, 1X/DAY
     Dates: start: 20150217
  5. LASIX [Concomitant]
     Active Substance: FUROSEMIDE
     Dosage: UNK
  6. ALLOPURINOL. [Concomitant]
     Active Substance: ALLOPURINOL
     Dosage: UNK
  7. OCUVITE [Concomitant]
     Active Substance: VITAMINS
     Dosage: UNK
  8. VITAMIN D [Concomitant]
     Active Substance: CHOLECALCIFEROL
     Dosage: UNK
  9. ELIGARD [Concomitant]
     Active Substance: LEUPROLIDE ACETATE
     Dosage: UNK
  10. INDOMETACIN [Suspect]
     Active Substance: INDOMETHACIN
     Indication: GOUT
     Dosage: UNK
  11. VITAMIN B [Concomitant]
     Active Substance: VITAMIN B
     Dosage: UNK
  12. LEVOTHYROXINE [Concomitant]
     Active Substance: LEVOTHYROXINE
  13. ASPIRIN. [Concomitant]
     Active Substance: ASPIRIN
     Dosage: UNK
  14. PROLIA [Concomitant]
     Active Substance: DENOSUMAB
     Dosage: UNK
  15. XTANDI [Suspect]
     Active Substance: ENZALUTAMIDE
     Dosage: UNK
     Dates: start: 20150129, end: 20150216

REACTIONS (9)
  - Abdominal discomfort [Recovered/Resolved]
  - Malaise [Recovering/Resolving]
  - Pain [Recovering/Resolving]
  - Gout [Unknown]
  - Diarrhoea [Recovered/Resolved]
  - Nausea [Recovered/Resolved]
  - Constipation [Recovering/Resolving]
  - Vomiting [Unknown]
  - Fatigue [Unknown]

NARRATIVE: CASE EVENT DATE: 20150120
